FAERS Safety Report 11323274 (Version 1)
Quarter: 2015Q3

REPORT INFORMATION
  Report Type: Spontaneous
  Country: US (occurrence: None)
  Receive Date: 20150729
  Receipt Date: 20150729
  Transmission Date: 20151125
  Serious: Yes (Other)
  Sender: FDA-Public Use
  Company Number: None

PATIENT
  Age: 48 Year
  Sex: Female
  Weight: 86.18 kg

DRUGS (7)
  1. SYNTHROID [Concomitant]
     Active Substance: LEVOTHYROXINE SODIUM
  2. OMEPRAZOLE. [Concomitant]
     Active Substance: OMEPRAZOLE
  3. PROCARE HEALTH BARIATRIC CHEWABLE [Concomitant]
  4. TEMAZEPAM. [Concomitant]
     Active Substance: TEMAZEPAM
  5. CHLORTRIMETON [Concomitant]
     Active Substance: CHLORPHENIRAMINE MALEATE
  6. LORAZEPAM. [Concomitant]
     Active Substance: LORAZEPAM
  7. NASCOBAL [Suspect]
     Active Substance: CYANOCOBALAMIN
     Indication: VITAMIN B12 DEFICIENCY
     Route: 055

REACTIONS (1)
  - Anxiety [None]

NARRATIVE: CASE EVENT DATE: 20150609
